FAERS Safety Report 7228485-6 (Version None)
Quarter: 2011Q1

REPORT INFORMATION
  Report Type: 
  Country: None (occurrence: None)
  Receive Date: 20110114
  Receipt Date: 20110105
  Transmission Date: 20110831
  Serious: Yes (Hospitalization)
  Sender: FDA-Public Use
  Company Number: US-JNJCH-2011000669

PATIENT
  Age: 53 Year
  Sex: Female

DRUGS (1)
  1. CALCIUM CARBONATE (UNSPECIFIED) [Suspect]
     Indication: DYSPEPSIA
     Dosage: TEXT:^BY THE HANDFULS^
     Route: 048

REACTIONS (3)
  - INCORRECT DOSE ADMINISTERED [None]
  - MILK-ALKALI SYNDROME [None]
  - CARDIAC ARREST [None]
